FAERS Safety Report 6722567-0 (Version None)
Quarter: 2010Q2

REPORT INFORMATION
  Report Type: 
  Country: None (occurrence: None)
  Receive Date: 20100512
  Receipt Date: 20100430
  Transmission Date: 20101027
  Serious: Yes (Other)
  Sender: FDA-Public Use
  Company Number: US-PFIZER INC-2005076155

PATIENT
  Sex: Female
  Weight: 77.56 kg

DRUGS (5)
  1. BEXTRA [Suspect]
     Route: 048
  2. FELDENE [Suspect]
     Route: 065
     Dates: start: 20050411, end: 20050418
  3. ZOCOR [Suspect]
     Indication: BLOOD CHOLESTEROL INCREASED
     Route: 048
     Dates: start: 20050414, end: 20050418
  4. THYROID TAB [Concomitant]
     Route: 048
  5. DETROL LA [Concomitant]
     Route: 048

REACTIONS (6)
  - GASTRIC DISORDER [None]
  - PAIN [None]
  - PHOTOSENSITIVITY ALLERGIC REACTION [None]
  - PRURITUS [None]
  - RASH [None]
  - SWELLING [None]
